FAERS Safety Report 8439867-9 (Version None)
Quarter: 2012Q2

REPORT INFORMATION
  Report Type: 
  Country: None (occurrence: None)
  Receive Date: 20120615
  Receipt Date: 20120614
  Transmission Date: 20120825
  Serious: Yes (Death, Other)
  Sender: FDA-Public Use
  Company Number: PHHY2012JP018368

PATIENT
  Sex: Male
  Weight: 46 kg

DRUGS (7)
  1. FERROUS CITRATE [Concomitant]
     Dosage: 200 MG, UNK
     Route: 048
  2. MAGMITT KENEI [Concomitant]
     Dosage: 750 MG, UNK
     Route: 048
  3. ADALAT [Concomitant]
     Dosage: 10 MG, UNK
     Route: 048
  4. DECADRON [Concomitant]
     Dosage: 1 MG, UNK
     Route: 048
  5. EPINASTINE HYDROCHLORIDE [Concomitant]
     Dosage: 20 MG, UNK
     Route: 048
  6. AFINITOR [Suspect]
     Indication: METASTATIC RENAL CELL CARCINOMA
     Dosage: 10 MG, DAILY
     Route: 048
     Dates: start: 20110908, end: 20111006
  7. LEVOTHYROXINE SODIUM [Concomitant]
     Dosage: 100 UG, UNK
     Route: 048

REACTIONS (4)
  - NEOPLASM PROGRESSION [None]
  - NEOPLASM MALIGNANT [None]
  - DEATH [None]
  - INTERSTITIAL LUNG DISEASE [None]
